FAERS Safety Report 9131621 (Version 2)
Quarter: 2013Q1

REPORT INFORMATION
  Report Type: Spontaneous
  Country: BR (occurrence: BR)
  Receive Date: 20130301
  Receipt Date: 20130311
  Transmission Date: 20140127
  Serious: Yes (Other)
  Sender: FDA-Public Use
  Company Number: BR-PFIZER INC-2013072146

PATIENT
  Age: 53 Year
  Sex: Female

DRUGS (4)
  1. ATENOLOL [Suspect]
     Indication: ARRHYTHMIA
     Dosage: 0.5 DF, DAILY
     Route: 048
     Dates: start: 201208
  2. SIMVASTATIN [Suspect]
     Dosage: UNK DF, 1X/DAY
     Route: 048
  3. CRESTOR [Suspect]
     Indication: BLOOD CHOLESTEROL INCREASED
     Dosage: 5 MG, UNK
     Route: 048
     Dates: start: 20130214
  4. VERTIX [Concomitant]
     Indication: LABYRINTHITIS
     Dosage: UNK
     Route: 048
     Dates: start: 2011

REACTIONS (6)
  - Thyroid neoplasm [Not Recovered/Not Resolved]
  - Diabetes mellitus [Unknown]
  - Dyspnoea [Recovered/Resolved]
  - Headache [Recovered/Resolved]
  - Dizziness [Recovered/Resolved]
  - Constipation [Unknown]
